FAERS Safety Report 6784155-X (Version None)
Quarter: 2010Q2

REPORT INFORMATION
  Report Type: 
  Country: None (occurrence: None)
  Receive Date: 20100618
  Receipt Date: 20091215
  Transmission Date: 20101027
  Serious: Yes (Disabling)
  Sender: FDA-Public Use
  Company Number: APP200900631

PATIENT
  Age: 49 Year
  Sex: Female

DRUGS (9)
  1. SENSORCAINE [Suspect]
     Indication: MUSCULOSKELETAL PAIN
     Dosage: 270 ML, CONTINUOUS VIA PUMP, INTRA-ARTICULAR; 400 ML, CONTINUOUS VIA PUMP, INTRA-ARTICULAR
     Route: 014
     Dates: start: 20060420
  2. SENSORCAINE [Suspect]
     Indication: MUSCULOSKELETAL PAIN
     Dosage: 270 ML, CONTINUOUS VIA PUMP, INTRA-ARTICULAR; 400 ML, CONTINUOUS VIA PUMP, INTRA-ARTICULAR
     Route: 014
     Dates: start: 20060921
  3. I-FLOW PAINBUSTER PUMP [Suspect]
     Indication: MUSCULOSKELETAL PAIN
     Dates: start: 20050908
  4. I-FLOW PAINBUSTER PUMP [Suspect]
     Indication: MUSCULOSKELETAL PAIN
     Dates: start: 20060420
  5. I-FLOW PAINBUSTER PUMP [Suspect]
     Indication: MUSCULOSKELETAL PAIN
     Dates: start: 20060921
  6. BUPIVACAINE HYDROCHLORIDE AND EPINEPHRINE [Suspect]
     Indication: MUSCULOSKELETAL PAIN
     Dosage: SEE IMAGE
     Route: 014
     Dates: start: 20050908
  7. BUPIVACAINE HYDROCHLORIDE AND EPINEPHRINE [Suspect]
     Indication: MUSCULOSKELETAL PAIN
     Dosage: SEE IMAGE
     Route: 014
     Dates: start: 20050908
  8. BUPIVACAINE HYDROCHLORIDE AND EPINEPHRINE [Suspect]
     Indication: MUSCULOSKELETAL PAIN
     Dosage: SEE IMAGE
     Route: 014
     Dates: start: 20060420
  9. BUPIVACAINE HYDROCHLORIDE AND EPINEPHRINE [Suspect]
     Indication: MUSCULOSKELETAL PAIN
     Dosage: SEE IMAGE
     Route: 014
     Dates: start: 20060921

REACTIONS (5)
  - CHONDROLYSIS [None]
  - DISEASE RECURRENCE [None]
  - OSTEOARTHRITIS [None]
  - ROTATOR CUFF SYNDROME [None]
  - SYNOVITIS [None]
